FAERS Safety Report 4912868-0 (Version None)
Quarter: 2006Q1

REPORT INFORMATION
  Report Type: 
  Country: None (occurrence: None)
  Receive Date: 20060210
  Receipt Date: 20060123
  Transmission Date: 20060701
  Serious: Yes (Death)
  Sender: FDA-Public Use
  Company Number: B0403208A

PATIENT
  Age: 24 Month
  Sex: Male
  Weight: 2.8123 kg

DRUGS (7)
  1. ADVAIR DISKUS 100/50 [Suspect]
     Indication: ASTHMA
     Dosage: INHALED
     Route: 055
     Dates: start: 20030101
  2. BUDESONIDE UNSPECIFIED INHALER DEVICE (BUDESONIDE) [Suspect]
     Dosage: INHALED
     Route: 055
  3. PREDNISOLONE [Suspect]
     Dosage: UNKNOWN
     Route: 065
  4. FLOVENT [Suspect]
     Dosage: INHALED
     Route: 055
  5. SALBUTAMOL SULPHATE [Concomitant]
  6. EUPHYLLIN [Concomitant]
  7. ANTIHISTAMINE [Concomitant]

REACTIONS (31)
  - ADRENAL DISORDER [None]
  - ADRENAL INSUFFICIENCY [None]
  - ASTHMA [None]
  - ATELECTASIS [None]
  - BRAIN OEDEMA [None]
  - BRONCHITIS CHRONIC [None]
  - CARDIAC FAILURE ACUTE [None]
  - CARDIOMEGALY [None]
  - CONDITION AGGRAVATED [None]
  - CONGENITAL ADRENAL GLAND HYPOPLASIA [None]
  - CYANOSIS [None]
  - DIAPEDESIS [None]
  - EMPHYSEMA [None]
  - ENTEROCOCCAL INFECTION [None]
  - ESCHERICHIA INFECTION [None]
  - FURUNCLE [None]
  - HAEMOSIDEROSIS [None]
  - HEPATOMEGALY [None]
  - HYDROTHORAX [None]
  - HYPERTENSION [None]
  - MASS [None]
  - MUCOUS MEMBRANE DISORDER [None]
  - MYOCARDIAL OEDEMA [None]
  - NECROSIS [None]
  - PALLOR [None]
  - PETECHIAE [None]
  - PULMONARY HAEMORRHAGE [None]
  - REFUSAL OF TREATMENT BY RELATIVE [None]
  - RENAL HYPERTROPHY [None]
  - RESPIRATORY TRACT INFECTION VIRAL [None]
  - THYMUS HYPERTROPHY [None]
